FAERS Safety Report 23705820 (Version 1)
Quarter: 2024Q2

REPORT INFORMATION
  Report Type: Spontaneous
  Country: US (occurrence: US)
  Receive Date: 20240404
  Receipt Date: 20240404
  Transmission Date: 20240716
  Serious: Yes (Other)
  Sender: FDA-Public Use
  Company Number: US-MLMSERVICE-20190610-1799527-1

PATIENT
  Age: 58 Year
  Sex: Female

DRUGS (9)
  1. PREDNISONE [Suspect]
     Active Substance: PREDNISONE
     Indication: Immunosuppressant drug therapy
     Dosage: UNK, INCREASES IN HER IMMUNOSUPPRESSIVE THERAPY
     Route: 065
     Dates: end: 201512
  2. PREDNISONE [Suspect]
     Active Substance: PREDNISONE
     Dosage: UNK, INTERMITTENT STEROIDS
     Route: 065
     Dates: start: 201110
  3. PREDNISONE [Suspect]
     Active Substance: PREDNISONE
     Dosage: UNK, INCREASE THE DOSE
     Route: 065
     Dates: start: 201512
  4. MYCOPHENOLIC ACID [Suspect]
     Active Substance: MYCOPHENOLIC ACID
     Indication: Immunosuppressant drug therapy
     Dosage: UNK
     Route: 065
     Dates: start: 201110
  5. MYCOPHENOLIC ACID [Suspect]
     Active Substance: MYCOPHENOLIC ACID
     Dosage: UNK, INCREASES IN HER IMMUNOSUPPRESSIVE THERAPY
     Route: 065
     Dates: end: 201608
  6. TACROLIMUS [Suspect]
     Active Substance: TACROLIMUS
     Indication: Immunosuppressant drug therapy
     Dosage: UNK, INCREASES IN HER IMMUNOSUPPRESSIVE THERAPY
     Route: 065
  7. TACROLIMUS [Suspect]
     Active Substance: TACROLIMUS
     Dosage: UNK
     Route: 065
     Dates: start: 201110
  8. ALPHA-1-PROTEINASE INHIBITOR HUMAN [Concomitant]
     Indication: Product used for unknown indication
     Dosage: UNK
     Route: 065
     Dates: start: 201110
  9. ALPHA-1-PROTEINASE INHIBITOR HUMAN [Concomitant]
     Dosage: UNK, INCREASE THE DOSE
     Route: 065
     Dates: start: 201512

REACTIONS (2)
  - Pleomorphism [Recovering/Resolving]
  - Sarcoma of skin [Recovering/Resolving]

NARRATIVE: CASE EVENT DATE: 20160701
